FAERS Safety Report 5188718-7 (Version None)
Quarter: 2006Q4

REPORT INFORMATION
  Report Type: 
  Country: None (occurrence: None)
  Receive Date: 20061214
  Receipt Date: 20061204
  Transmission Date: 20070319
  Serious: Yes (Other)
  Sender: FDA-Public Use
  Company Number: 2006150083

PATIENT
  Sex: Female

DRUGS (2)
  1. LIPITOR [Suspect]
     Dosage: (10 MG)
  2. MULTI-VITAMINS [Concomitant]

REACTIONS (2)
  - FEELING ABNORMAL [None]
  - MUSCULOSKELETAL PAIN [None]
